FAERS Safety Report 24828979 (Version 3)
Quarter: 2025Q2

REPORT INFORMATION
  Report Type: Report from Study
  Country: US (occurrence: US)
  Receive Date: 20250110
  Receipt Date: 20250421
  Transmission Date: 20250717
  Serious: No
  Sender: SUNOVION
  Company Number: US-SMPA-2024SPA006832AA

PATIENT

DRUGS (1)
  1. ORGOVYX [Suspect]
     Active Substance: RELUGOLIX
     Indication: Prostate cancer
     Dosage: 120 MG, QD
     Route: 048
     Dates: start: 20241231

REACTIONS (7)
  - Spondylitis [Unknown]
  - Pollakiuria [Unknown]
  - COVID-19 [Unknown]
  - Abdominal discomfort [Unknown]
  - Arthritis [Unknown]
  - Headache [Unknown]
  - Incorrect dose administered [Unknown]
